FAERS Safety Report 25597111 (Version 2)
Quarter: 2025Q3

REPORT INFORMATION
  Report Type: Spontaneous
  Country: EU (occurrence: EU)
  Receive Date: 20250723
  Receipt Date: 20250905
  Transmission Date: 20251020
  Serious: Yes (Hospitalization, Other)
  Sender: NOVARTIS
  Company Number: EU-002147023-NVSC2025ES116509

PATIENT
  Age: 81 Year
  Sex: Female

DRUGS (9)
  1. MYFORTIC [Suspect]
     Active Substance: MYCOPHENOLATE SODIUM
     Indication: C3 glomerulopathy
     Route: 048
     Dates: start: 202112
  2. MYFORTIC [Suspect]
     Active Substance: MYCOPHENOLATE SODIUM
     Route: 048
     Dates: end: 202212
  3. MYFORTIC [Suspect]
     Active Substance: MYCOPHENOLATE SODIUM
     Dosage: 360 MG, Q12H
     Route: 048
     Dates: end: 202210
  4. MYFORTIC [Suspect]
     Active Substance: MYCOPHENOLATE SODIUM
     Dosage: 360 MG, Q8H
     Route: 048
     Dates: start: 202210
  5. MYFORTIC [Suspect]
     Active Substance: MYCOPHENOLATE SODIUM
     Dosage: 180 MG, Q12H
     Route: 048
     Dates: start: 2023, end: 2024
  6. MYFORTIC [Suspect]
     Active Substance: MYCOPHENOLATE SODIUM
     Route: 048
     Dates: start: 2024, end: 2025
  7. MYFORTIC [Suspect]
     Active Substance: MYCOPHENOLATE SODIUM
     Dosage: 360 MG, Q12H
     Route: 048
     Dates: start: 202503
  8. CELLCEPT [Suspect]
     Active Substance: MYCOPHENOLATE MOFETIL
     Indication: Product used for unknown indication
     Route: 065
  9. DAPAGLIFLOZIN [Concomitant]
     Active Substance: DAPAGLIFLOZIN
     Indication: Product used for unknown indication
     Route: 065

REACTIONS (10)
  - Anaemia [Unknown]
  - Diarrhoea [Unknown]
  - Pneumonia [Unknown]
  - Thrombocytopenia [Unknown]
  - Thrombotic microangiopathy [Unknown]
  - Gout [Unknown]
  - Cytomegalovirus infection [Unknown]
  - Proteinuria [Recovered/Resolved]
  - SARS-CoV-2 test positive [Unknown]
  - Off label use [Unknown]

NARRATIVE: CASE EVENT DATE: 20220101
